FAERS Safety Report 5140306-4 (Version None)
Quarter: 2006Q4

REPORT INFORMATION
  Report Type: 
  Country: None (occurrence: None)
  Receive Date: 20061031
  Receipt Date: 20061024
  Transmission Date: 20070319
  Serious: Yes (Other)
  Sender: FDA-Public Use
  Company Number: UG-GLAXOSMITHKLINE-B0444407A

PATIENT
  Age: 19 Year
  Sex: Female
  Weight: 69.5 kg

DRUGS (2)
  1. ALBENDAZOLE [Suspect]
     Indication: HELMINTHIC INFECTION
     Dosage: 400MG SINGLE DOSE
     Route: 048
     Dates: start: 20050826, end: 20050826
  2. PLACEBO [Suspect]
     Indication: HELMINTHIC INFECTION
     Route: 048
     Dates: start: 20050826, end: 20050826

REACTIONS (1)
  - STILLBIRTH [None]
